FAERS Safety Report 7002510-X (Version None)
Quarter: 2010Q3

REPORT INFORMATION
  Report Type: 
  Country: None (occurrence: None)
  Receive Date: 20100920
  Receipt Date: 20091216
  Transmission Date: 20110219
  Serious: No
  Sender: FDA-Public Use
  Company Number: US-ASTRAZENECA-2009UW20469

PATIENT
  Age: 482 Month
  Sex: Female
  Weight: 112.5 kg

DRUGS (6)
  1. SEROQUEL [Suspect]
     Indication: SCHIZOAFFECTIVE DISORDER
     Dosage: 50MG- 300MG ONE PER DAY
     Route: 048
     Dates: start: 20010601, end: 20060117
  2. SEROQUEL [Suspect]
     Indication: BIPOLAR DISORDER
     Dosage: 50MG- 300MG ONE PER DAY
     Route: 048
     Dates: start: 20010601, end: 20060117
  3. ABILIFY [Concomitant]
     Dates: start: 20080101
  4. PAXIL [Concomitant]
     Dates: start: 20010101, end: 20070101
  5. TRAZODONE HCL [Concomitant]
  6. CLONIDINE [Concomitant]

REACTIONS (7)
  - ASTHMA [None]
  - BLOOD CHOLESTEROL INCREASED [None]
  - BLOOD TRIGLYCERIDES INCREASED [None]
  - OBESITY [None]
  - SOMNOLENCE [None]
  - TYPE 2 DIABETES MELLITUS [None]
  - WEIGHT INCREASED [None]
